FAERS Safety Report 4269955-2 (Version None)
Quarter: 2004Q1

REPORT INFORMATION
  Report Type: 
  Country: None (occurrence: None)
  Receive Date: 20040112
  Receipt Date: 20031230
  Transmission Date: 20041129
  Serious: Yes (Hospitalization)
  Sender: FDA-Public Use
  Company Number: US-JNJFOC-20040100323

PATIENT
  Age: 68 Year
  Sex: Male
  Weight: 88.905 kg

DRUGS (10)
  1. INFLIXIMAB (INFLIXIAMB, RECOMBINANT) LYOPHILIZED POWDER [Suspect]
     Indication: RHEUMATOID ARTHRITIS
     Dosage: INTRAVENOUS
     Route: 042
     Dates: start: 20010305
  2. CELEBREX [Concomitant]
  3. METHOTREXATE [Concomitant]
  4. GLIPIZIDE [Concomitant]
  5. METFORMIN HCL [Concomitant]
  6. STARLIX [Concomitant]
  7. DIOVAN [Concomitant]
  8. FOLIC ACID [Concomitant]
  9. MULTIVITAMIN [Concomitant]
  10. ASPIRIN [Concomitant]

REACTIONS (3)
  - DYSPNOEA [None]
  - GAIT DISTURBANCE [None]
  - SUBDURAL HAEMATOMA [None]
